FAERS Safety Report 21779532 (Version 5)
Quarter: 2023Q1

REPORT INFORMATION
  Report Type: Report from Study
  Country: US (occurrence: None)
  Receive Date: 20221226
  Receipt Date: 20230328
  Transmission Date: 20230417
  Serious: Yes (Life-Threatening, Hospitalization)
  Sender: FDA-Public Use
  Company Number: US-ROCHE-3249616

PATIENT
  Age: 59 Year
  Sex: Male
  Weight: 90.1 kg

DRUGS (12)
  1. RITUXIMAB [Suspect]
     Active Substance: RITUXIMAB
     Indication: B-cell lymphoma
     Dosage: ON 16/NOV/2022, HE RECEIVED MOST RECENT DOSE OF STUDY DRUG PRIOR TO SAE.
     Route: 041
     Dates: start: 20221007
  2. POLATUZUMAB VEDOTIN [Suspect]
     Active Substance: POLATUZUMAB VEDOTIN
     Indication: B-cell lymphoma
     Dosage: ON 16/NOV/2022, SHE RECEIVED MOST RECENT DOSE OF STUDY DRUG PRIOR TO SAE
     Route: 042
     Dates: start: 20221007
  3. TYLENOL [Concomitant]
     Active Substance: ACETAMINOPHEN
     Indication: Prophylaxis
     Route: 048
     Dates: start: 20221116, end: 20221116
  4. BENADRYL [Concomitant]
     Active Substance: DIPHENHYDRAMINE HYDROCHLORIDE
     Route: 048
     Dates: start: 20221116, end: 20221116
  5. SODIUM CHLORIDE [Concomitant]
     Active Substance: SODIUM CHLORIDE
     Route: 042
     Dates: start: 20221116, end: 20221116
  6. SODIUM CHLORIDE [Concomitant]
     Active Substance: SODIUM CHLORIDE
     Route: 042
     Dates: start: 20221116, end: 20221116
  7. SODIUM CHLORIDE [Concomitant]
     Active Substance: SODIUM CHLORIDE
     Route: 042
     Dates: start: 20221116, end: 20221116
  8. SODIUM CHLORIDE [Concomitant]
     Active Substance: SODIUM CHLORIDE
     Indication: Prophylaxis
     Route: 042
     Dates: start: 20221116, end: 20221116
  9. ALBUTEROL [Concomitant]
     Active Substance: ALBUTEROL
     Dosage: 90 OTHER
     Route: 055
     Dates: start: 20221220
  10. ACETAMINOPHEN [Concomitant]
     Active Substance: ACETAMINOPHEN
     Route: 048
     Dates: start: 20230113, end: 20230113
  11. MAGNESIUM HYDROXIDE [Concomitant]
     Active Substance: MAGNESIUM HYDROXIDE
     Route: 048
     Dates: start: 20230113, end: 20230113
  12. ACYCLOVIR [Concomitant]
     Active Substance: ACYCLOVIR
     Route: 048
     Dates: start: 20230113, end: 20230113

REACTIONS (1)
  - COVID-19 [Recovering/Resolving]

NARRATIVE: CASE EVENT DATE: 20221211
